FAERS Safety Report 16528462 (Version 1)
Quarter: 2019Q3

REPORT INFORMATION
  Report Type: Spontaneous
  Country: CA (occurrence: CA)
  Receive Date: 20190703
  Receipt Date: 20190703
  Transmission Date: 20191004
  Serious: Yes (Hospitalization, Congenital Anomaly, Other)
  Sender: FDA-Public Use
  Company Number: CA-TEVA-2019-CA-1070534

PATIENT
  Sex: Male

DRUGS (1)
  1. PAROXETINE HYDROCHLORIDE. [Suspect]
     Active Substance: PAROXETINE HYDROCHLORIDE
     Indication: PERINATAL DEPRESSION
     Dosage: 20 MILLIGRAM DAILY;
     Route: 064

REACTIONS (5)
  - Cleft lip [Unknown]
  - Foetal exposure during pregnancy [Unknown]
  - Nose deformity [Unknown]
  - Foot deformity [Unknown]
  - Cleft palate [Unknown]
